FAERS Safety Report 18774336 (Version 5)
Quarter: 2023Q1

REPORT INFORMATION
  Report Type: Report from Study
  Country: GR (occurrence: GR)
  Receive Date: 20210122
  Receipt Date: 20230203
  Transmission Date: 20230417
  Serious: Yes (Death, Hospitalization)
  Sender: FDA-Public Use
  Company Number: GR-KARYOPHARM-2020KPT001443

PATIENT
  Age: 72 Year
  Sex: Female
  Weight: 66 kg

DRUGS (14)
  1. SELINEXOR [Suspect]
     Active Substance: SELINEXOR
     Indication: Plasma cell myeloma
     Dosage: 40 MG, 2X/WEEK
     Route: 048
     Dates: start: 20201006, end: 20201127
  2. DEXAMETHASONE [Suspect]
     Active Substance: DEXAMETHASONE
     Indication: Plasma cell myeloma
     Dosage: 20 MG, 2X/WEEK
     Route: 048
     Dates: start: 20201006, end: 20201127
  3. VALTREX [Concomitant]
     Active Substance: VALACYCLOVIR HYDROCHLORIDE
     Indication: Prophylaxis
     Dosage: 500 MG, QD
     Route: 048
     Dates: start: 20201006
  4. BACTRIMEL SPECIFIK [Concomitant]
     Indication: Sepsis
     Dosage: 960 MG, TID
     Route: 042
     Dates: start: 20201018
  5. ISTERGAN [Concomitant]
     Indication: Antiviral prophylaxis
     Dosage: 0.5 G, QD
     Route: 048
     Dates: start: 2013
  6. CANCIDAS [Concomitant]
     Active Substance: CASPOFUNGIN ACETATE
     Indication: Sepsis
     Dosage: 70 MG, QD
     Route: 042
     Dates: start: 20201018
  7. MEROPENEM [Concomitant]
     Active Substance: MEROPENEM
     Indication: Sepsis
     Dosage: 1 G, BID
     Route: 042
     Dates: start: 20201018
  8. MEROPENEM [Concomitant]
     Active Substance: MEROPENEM
     Dosage: 1 UNK
     Route: 042
     Dates: start: 20201108, end: 20201116
  9. ZITHROMAX [Concomitant]
     Active Substance: AZITHROMYCIN DIHYDRATE
     Indication: Sepsis
     Dosage: 500 MG, QD
     Route: 042
     Dates: start: 20201018
  10. ZITHROMAX [Concomitant]
     Active Substance: AZITHROMYCIN DIHYDRATE
     Dosage: 500 UNK
     Route: 042
     Dates: start: 20201108, end: 20201113
  11. BRIKLIN [AMIKACIN SULFATE] [Concomitant]
     Indication: Sepsis
     Dosage: 500 MG, SINGLE
     Route: 042
     Dates: start: 20201018
  12. SOLU-MEDROL [Concomitant]
     Active Substance: METHYLPREDNISOLONE SODIUM SUCCINATE
     Indication: Sepsis
     Dosage: 20 MG, QID
     Route: 042
     Dates: start: 20201018
  13. LINEZOLID [Concomitant]
     Active Substance: LINEZOLID
     Indication: Sepsis
     Dosage: 600 MG, BID
     Route: 042
     Dates: start: 20201018
  14. NORVASC [Concomitant]
     Active Substance: AMLODIPINE BESYLATE
     Indication: Hypertension
     Dosage: 10 MG, QD
     Route: 048

REACTIONS (2)
  - Respiratory tract infection [Recovered/Resolved]
  - Cardiac arrest [Fatal]

NARRATIVE: CASE EVENT DATE: 20201121
